FAERS Safety Report 5788683-5 (Version None)
Quarter: 2008Q2

REPORT INFORMATION
  Report Type: 
  Country: None (occurrence: None)
  Receive Date: 20080626
  Receipt Date: 20080617
  Transmission Date: 20081010
  Serious: Yes (Hospitalization, Disabling, Other)
  Sender: FDA-Public Use
  Company Number: US-AMGEN-QUU282715

PATIENT
  Sex: Female
  Weight: 67.6 kg

DRUGS (23)
  1. ENBREL [Suspect]
     Indication: RHEUMATOID ARTHRITIS
     Route: 058
     Dates: start: 20071114
  2. TRICOR [Concomitant]
     Route: 048
     Dates: start: 20070410
  3. AMITIZA [Concomitant]
     Route: 048
     Dates: start: 20070410
  4. LAXATIVES [Concomitant]
     Route: 048
     Dates: start: 20070410
  5. TYLENOL [Concomitant]
     Route: 048
     Dates: start: 20070410
  6. ASCORBIC ACID [Concomitant]
     Route: 048
     Dates: start: 20070123
  7. DARVOCET-N 100 [Concomitant]
     Route: 048
     Dates: start: 20070806
  8. DOXYCYCLINE HYCLATE [Concomitant]
     Route: 048
     Dates: start: 20070806
  9. LORAZEPAM [Concomitant]
     Route: 048
     Dates: start: 20070410
  10. UNSPECIFIED MEDICATION [Concomitant]
     Route: 014
     Dates: start: 20071126
  11. FOLIC ACID [Concomitant]
     Route: 048
     Dates: start: 20070615
  12. VERELAN [Concomitant]
     Route: 048
     Dates: start: 20070123
  13. NORVASC [Concomitant]
     Route: 048
     Dates: start: 20070123
  14. PINDOLOL [Concomitant]
     Route: 048
     Dates: start: 20070123
  15. LYRICA [Concomitant]
     Route: 048
     Dates: start: 20070123
  16. VITAMIN B-12 [Concomitant]
     Route: 048
     Dates: start: 20070123
  17. ASPIRIN [Concomitant]
     Route: 048
     Dates: start: 20070123
  18. TRIAMTEREN [Concomitant]
     Route: 048
     Dates: start: 20070123
  19. HYDROCHLOROTHIAZIDE [Concomitant]
     Route: 048
     Dates: start: 20070123
  20. GLUCOSAMINE [Concomitant]
     Route: 048
     Dates: start: 20070123
  21. POTASSIUM CHLORIDE [Concomitant]
     Route: 048
     Dates: start: 20070116
  22. SULFASALAZINE [Concomitant]
     Route: 048
     Dates: start: 20070123
  23. CRESTOR [Concomitant]
     Route: 048
     Dates: start: 20070713

REACTIONS (16)
  - ANAEMIA OF CHRONIC DISEASE [None]
  - BACK PAIN [None]
  - BLOOD POTASSIUM DECREASED [None]
  - BRONCHITIS [None]
  - BURSITIS [None]
  - COLONIC POLYP [None]
  - GAIT DISTURBANCE [None]
  - LABILE BLOOD PRESSURE [None]
  - MEMORY IMPAIRMENT [None]
  - MUSCLE SPASMS [None]
  - OSTEOARTHRITIS [None]
  - OSTEOPOROSIS [None]
  - PNEUMONIA [None]
  - RENAL DISORDER [None]
  - RHEUMATOID ARTHRITIS [None]
  - URINARY TRACT INFECTION [None]
